FAERS Safety Report 25271298 (Version 4)
Quarter: 2025Q2

REPORT INFORMATION
  Report Type: Report from Study
  Country: US (occurrence: US)
  Receive Date: 20250506
  Receipt Date: 20250609
  Transmission Date: 20250717
  Serious: Yes (Other)
  Sender: ACADIA PHARMACEUTICALS
  Company Number: US-ACADIA PHARMACEUTICALS INC.-ACA-2025-PIM-005053

PATIENT
  Sex: Female
  Weight: 85.261 kg

DRUGS (1)
  1. NUPLAZID [Suspect]
     Active Substance: PIMAVANSERIN TARTRATE
     Indication: Parkinson^s disease psychosis
     Dosage: 34 MILLIGRAM, QD
     Route: 048
     Dates: start: 20250402

REACTIONS (5)
  - Hallucination, visual [Unknown]
  - Hallucination [Unknown]
  - Hypoacusis [Unknown]
  - Dysgraphia [Unknown]
  - Gait disturbance [Unknown]
